FAERS Safety Report 19009943 (Version 2)
Quarter: 2023Q1

REPORT INFORMATION
  Report Type: Spontaneous
  Country: DE (occurrence: DE)
  Receive Date: 20210315
  Receipt Date: 20230131
  Transmission Date: 20230417
  Serious: Yes (Hospitalization)
  Sender: FDA-Public Use
  Company Number: DE-ADRED-05955-01

PATIENT
  Age: 84 Year
  Sex: Female

DRUGS (3)
  1. AMOXICILLIN\CLAVULANIC ACID [Suspect]
     Active Substance: AMOXICILLIN\CLAVULANIC ACID
     Indication: Product used for unknown indication
     Dosage: SINCE 24 02 2020
     Route: 065
  2. TIMOLOL [Concomitant]
     Active Substance: TIMOLOL
     Indication: Product used for unknown indication
     Dosage: 2 DOSAGE FORMS DAILY; 1-0-1 BDS
     Route: 065
  3. METAMIZOLE [Concomitant]
     Active Substance: METAMIZOLE
     Indication: Product used for unknown indication
     Dosage: 1500 MILLIGRAM DAILY; 500 MG, 1-1-1
     Route: 065

REACTIONS (9)
  - Oxygen saturation decreased [Unknown]
  - Rhonchi [Unknown]
  - Dyspnoea [Unknown]
  - Cyanosis [Unknown]
  - Pneumonia aspiration [Unknown]
  - Tachypnoea [Unknown]
  - Pyrexia [Unknown]
  - Product prescribing error [Unknown]
  - Product prescribing error [Unknown]

NARRATIVE: CASE EVENT DATE: 20200224
